FAERS Safety Report 6441757-8 (Version None)
Quarter: 2009Q4

REPORT INFORMATION
  Report Type: 
  Country: None (occurrence: None)
  Receive Date: 20091116
  Receipt Date: 20091111
  Transmission Date: 20100525
  Serious: Yes (Hospitalization)
  Sender: FDA-Public Use
  Company Number: US-BRISTOL-MYERS SQUIBB COMPANY-14854293

PATIENT
  Age: 68 Year
  Sex: Female
  Weight: 61 kg

DRUGS (4)
  1. CARBOPLATIN [Suspect]
     Indication: NON-SMALL CELL LUNG CANCER
     Dosage: 1 DF = AUC 2/WK OVER 1HR IX/WEEK FOR 6 WEEKS,4 TH COURSE(TOT-DOSE RECEIVED-171MG)STARTED ON 05OCT09
     Route: 042
     Dates: start: 20091005
  2. TAXOL [Suspect]
     Indication: NON-SMALL CELL LUNG CANCER
     Dosage: 45MG/M2 OVER 1HR IX/WEEK FOR 6 WEEKS,START DATE OF 4TH COURSE(TOT-DOSE RECEIVED-73MG):05OCT09
     Route: 042
     Dates: start: 20091005
  3. RADIATION THERAPY [Suspect]
     Indication: NON-SMALL CELL LUNG CANCER
     Dosage: DOSAGEFORM=CGY, EXTERNAL BEAM 3D, LAST RECEIVED DATE:05OCT09;NO: OF FRACTIONS:15,ELAPSED DAYS:21
  4. MAXZIDE [Suspect]
     Route: 048

REACTIONS (1)
  - SYNCOPE [None]
